FAERS Safety Report 25238492 (Version 1)
Quarter: 2025Q2

REPORT INFORMATION
  Report Type: Spontaneous
  Country: US (occurrence: US)
  Receive Date: 20250425
  Receipt Date: 20250425
  Transmission Date: 20250717
  Serious: Yes (Other)
  Sender: LOREAL
  Company Number: US-LOREAL USA SD, INC.-2025LOR00018

PATIENT
  Sex: Male

DRUGS (7)
  1. LA ROCHE-POSAY EFFACLAR DUO DUAL ACTION ACNE TREATMENT [Suspect]
     Active Substance: BENZOYL PEROXIDE
  2. LA ROCHE POSAY EFFACLAR MEDICATED CLEANSER [Suspect]
     Active Substance: SALICYLIC ACID
  3. LA ROCHE-POSAY LIPIKAR DAILY REPAIR MOISTURIZING LOTION [Concomitant]
  4. LA ROCHE-POSAY LIPIKAR AP+ GENTLE FOAMING CLEANSING OIL [Concomitant]
  5. LA ROCHE-POSAY TOLERIANE PURIFYING FOAMING CLEANSER [Concomitant]
  6. LA ROCHE-POSAY THERMAL SPRING WATER [Concomitant]
  7. LA ROCHE-POSAY MELA B3 SERUM [Concomitant]

REACTIONS (1)
  - Lymphoma [Not Recovered/Not Resolved]
